FAERS Safety Report 6395269-0 (Version None)
Quarter: 2009Q4

REPORT INFORMATION
  Report Type: 
  Country: None (occurrence: None)
  Receive Date: 20091009
  Receipt Date: 20090929
  Transmission Date: 20100525
  Serious: Yes (Hospitalization)
  Sender: FDA-Public Use
  Company Number: A0785706A

PATIENT
  Age: 60 Year
  Sex: Male
  Weight: 114.1 kg

DRUGS (6)
  1. AVANDIA [Suspect]
     Indication: DIABETES MELLITUS
     Dosage: 4MG PER DAY
     Route: 065
     Dates: start: 20010201, end: 20070801
  2. AMARYL [Concomitant]
  3. LIPITOR [Concomitant]
  4. ZESTRIL [Concomitant]
  5. GLUCOPHAGE [Concomitant]
  6. DESIPRAMINE [Concomitant]

REACTIONS (4)
  - CARDIAC FAILURE CONGESTIVE [None]
  - CORONARY ARTERY DISEASE [None]
  - MYOCARDIAL INFARCTION [None]
  - MYOCARDIAL ISCHAEMIA [None]
